FAERS Safety Report 6014826-4 (Version None)
Quarter: 2008Q4

REPORT INFORMATION
  Report Type: 
  Country: None (occurrence: None)
  Receive Date: 20081219
  Receipt Date: 20081211
  Transmission Date: 20090506
  Serious: Yes (Death)
  Sender: FDA-Public Use
  Company Number: US-GENENTECH-273750

PATIENT
  Sex: Female
  Weight: 47.2 kg

DRUGS (2)
  1. RITUXIMAB [Suspect]
     Indication: RHEUMATOID ARTHRITIS
     Dosage: 500 MG, Q6M
     Route: 042
     Dates: start: 20070326
  2. RITUXIMAB [Suspect]
     Dosage: 1000 MG, Q6M
     Route: 042

REACTIONS (1)
  - DEATH [None]
